FAERS Safety Report 14915827 (Version 2)
Quarter: 2018Q3

REPORT INFORMATION
  Report Type: Spontaneous
  Country: US (occurrence: US)
  Receive Date: 20180518
  Receipt Date: 20180808
  Transmission Date: 20181010
  Serious: Yes (Hospitalization, Other)
  Sender: FDA-Public Use
  Company Number: US-009507513-1805USA004762

PATIENT
  Age: 72 Year
  Sex: Male

DRUGS (1)
  1. PREVYMIS [Suspect]
     Active Substance: LETERMOVIR
     Indication: ANTIVIRAL PROPHYLAXIS
     Dosage: (STRENGTH:480/24 MG/ML) 480MG, EVERY 24 HOURS
     Route: 042
     Dates: start: 20180501

REACTIONS (4)
  - Blood creatinine abnormal [Recovering/Resolving]
  - Blood urea increased [Recovering/Resolving]
  - Mental status changes [Recovering/Resolving]
  - Creatinine renal clearance abnormal [Unknown]

NARRATIVE: CASE EVENT DATE: 201805
